FAERS Safety Report 20884709 (Version 1)
Quarter: 2022Q2

REPORT INFORMATION
  Report Type: Spontaneous
  Country: JP (occurrence: JP)
  Receive Date: 20220527
  Receipt Date: 20220527
  Transmission Date: 20220721
  Serious: Yes (Other)
  Sender: FDA-Public Use
  Company Number: JP-PFIZER INC-202200751744

PATIENT
  Age: 88 Year
  Sex: Male
  Weight: 40.5 kg

DRUGS (11)
  1. VFEND [Suspect]
     Active Substance: VORICONAZOLE
     Indication: Bronchopulmonary aspergillosis
     Dosage: 150 MG, 2X/DAY
     Route: 048
     Dates: start: 20220505, end: 20220509
  2. AMLODIPINE BESYLATE [Concomitant]
     Active Substance: AMLODIPINE BESYLATE
     Dosage: 2.5 MG, 1X/DAY
  3. TAMSULOSIN HYDROCHLORIDE [Concomitant]
     Active Substance: TAMSULOSIN HYDROCHLORIDE
     Dosage: 0.2 MG, 1X/DAY
  4. URAPIDIL [Concomitant]
     Active Substance: URAPIDIL
     Dosage: 15 MG, 1X/DAY
  5. CALONAL [Concomitant]
     Active Substance: ACETAMINOPHEN
     Dosage: 300 MG, 2X/DAY
  6. PREGABALIN [Concomitant]
     Active Substance: PREGABALIN
     Dosage: 75 MG, 2X/DAY
  7. AZITHROMYCIN DIHYDRATE [Concomitant]
     Active Substance: AZITHROMYCIN DIHYDRATE
     Dosage: 250 MG, 1X/DAY
  8. EBUTOL [Concomitant]
     Active Substance: ETHAMBUTOL HYDROCHLORIDE
     Dosage: 750 MG, 1X/DAY
  9. LACB-R [Concomitant]
     Dosage: 1 G, 3X/DAY
  10. CARBOCYSTEINE [Concomitant]
     Active Substance: CARBOCYSTEINE
     Dosage: 250 MG, 3X/DAY
  11. SENNOSIDES A AND B [Concomitant]
     Active Substance: SENNOSIDES A AND B
     Dosage: 24 MG, 1X/DAY

REACTIONS (2)
  - Delirium [Recovered/Resolved]
  - Psychiatric symptom [Recovered/Resolved]

NARRATIVE: CASE EVENT DATE: 20220508
